FAERS Safety Report 7805598-9 (Version None)
Quarter: 2011Q4

REPORT INFORMATION
  Report Type: 
  Country: None (occurrence: None)
  Receive Date: 20111010
  Receipt Date: 20110929
  Transmission Date: 20120403
  Serious: Yes (Hospitalization, Other)
  Sender: FDA-Public Use
  Company Number: US-ASTRAZENECA-2011SE58956

PATIENT
  Age: 53 Year
  Sex: Female
  Weight: 61.7 kg

DRUGS (4)
  1. VITAMINS 50 PLUS ADVANTAGE [Concomitant]
     Dosage: DAILY
  2. NEXIUM [Suspect]
     Indication: GASTROOESOPHAGEAL REFLUX DISEASE
     Route: 048
     Dates: start: 20100101
  3. ACTONEL [Concomitant]
     Indication: BONE DISORDER
  4. NEXIUM [Suspect]
     Indication: PROPHYLAXIS AGAINST GASTROINTESTINAL ULCER
     Route: 048
     Dates: start: 20100101

REACTIONS (7)
  - BREAST CANCER [None]
  - DIABETES MELLITUS [None]
  - SYSTEMIC LUPUS ERYTHEMATOSUS [None]
  - GASTROINTESTINAL INFLAMMATION [None]
  - BLOOD CHOLESTEROL INCREASED [None]
  - MUSCULAR WEAKNESS [None]
  - HYPERTENSION [None]
